FAERS Safety Report 5133688-0 (Version None)
Quarter: 2006Q4

REPORT INFORMATION
  Report Type: 
  Country: None (occurrence: None)
  Receive Date: 20061024
  Receipt Date: 20060807
  Transmission Date: 20070319
  Serious: No
  Sender: FDA-Public Use
  Company Number: US-AMGEN-KDL189136

PATIENT
  Age: 59 Year
  Sex: Male

DRUGS (7)
  1. SENSIPAR [Suspect]
     Indication: HYPERPARATHYROIDISM SECONDARY
     Route: 048
     Dates: start: 20060301
  2. VITAMINS [Concomitant]
  3. INSULIN [Concomitant]
  4. PROTONIX [Concomitant]
  5. LEXAPRO [Concomitant]
  6. CHOLESTYRAMINE [Concomitant]
  7. RENAGEL [Concomitant]

REACTIONS (1)
  - BLOOD GLUCOSE INCREASED [None]
